FAERS Safety Report 15277764 (Version 1)
Quarter: 2018Q3

REPORT INFORMATION
  Report Type: Spontaneous
  Country: US (occurrence: US)
  Receive Date: 20180814
  Receipt Date: 20180814
  Transmission Date: 20181010
  Serious: Yes (Other)
  Sender: FDA-Public Use
  Company Number: US-UNITED THERAPEUTICS-UNT-2018-010692

PATIENT
  Age: 5 Year
  Sex: Male
  Weight: 17.37 kg

DRUGS (4)
  1. REVATIO [Concomitant]
     Active Substance: SILDENAFIL CITRATE
     Indication: PRODUCT USED FOR UNKNOWN INDICATION
     Route: 065
  2. REMODULIN [Suspect]
     Active Substance: TREPROSTINIL
     Indication: PULMONARY ARTERIAL HYPERTENSION
     Dosage: 0.110 ?G/KG, CONTINUING
     Route: 058
     Dates: start: 20150224
  3. REMODULIN [Suspect]
     Active Substance: TREPROSTINIL
     Indication: PULMONARY HYPERTENSION
  4. TRACLEER [Concomitant]
     Active Substance: BOSENTAN
     Indication: PRODUCT USED FOR UNKNOWN INDICATION
     Route: 065

REACTIONS (8)
  - Pallor [Recovering/Resolving]
  - Vomiting [Unknown]
  - Nausea [Unknown]
  - Infusion site pain [Unknown]
  - Heart rate irregular [Unknown]
  - Oxygen saturation decreased [Unknown]
  - Infusion site discomfort [Unknown]
  - Infusion site discharge [Recovering/Resolving]

NARRATIVE: CASE EVENT DATE: 20180706
